FAERS Safety Report 7096152-8 (Version None)
Quarter: 2010Q4

REPORT INFORMATION
  Report Type: 
  Country: None (occurrence: None)
  Receive Date: 20101111
  Receipt Date: 20101102
  Transmission Date: 20110411
  Serious: Yes (Other)
  Sender: FDA-Public Use
  Company Number: CA-JNJFOC-20100403976

PATIENT
  Sex: Male
  Weight: 82 kg

DRUGS (10)
  1. REMICADE [Suspect]
     Indication: COLITIS ULCERATIVE
     Route: 042
  2. IMURAN [Concomitant]
     Route: 048
  3. ATIVAN [Concomitant]
  4. FLONASE [Concomitant]
  5. ASPIRIN [Concomitant]
     Route: 048
  6. OXYCODONE HCL [Concomitant]
     Dosage: 1-2 TABLETS AS NEEDED
  7. CIPRO [Concomitant]
     Route: 048
  8. ZOPICLONE [Concomitant]
     Dosage: 1/2 TABLET AS NEEDED
  9. CHOLESTEROL DRUG [Concomitant]
  10. GABAPENTIN [Concomitant]
     Route: 048

REACTIONS (1)
  - LUPUS-LIKE SYNDROME [None]
